FAERS Safety Report 12134830 (Version 1)
Quarter: 2016Q1

REPORT INFORMATION
  Report Type: Spontaneous
  Country: CH (occurrence: CH)
  Receive Date: 20160301
  Receipt Date: 20160301
  Transmission Date: 20160526
  Serious: Yes (Hospitalization)
  Sender: FDA-Public Use
  Company Number: CH-TEVA-636760ISR

PATIENT
  Age: 78 Year
  Sex: Female

DRUGS (9)
  1. PARACETAMOL [Concomitant]
     Active Substance: ACETAMINOPHEN
     Dosage: 2000 MILLIGRAM DAILY; UNSPECIFIED STRENGTH
     Route: 065
     Dates: start: 20160104, end: 20160108
  2. TRIATEC [Concomitant]
     Active Substance: RAMIPRIL
     Dosage: UNSPECIFIED STRENGTH, PAUSES AND REINSTALLED
     Route: 065
  3. IRFEN-600 LACTAB [Suspect]
     Active Substance: IBUPROFEN
     Indication: PROCEDURAL PAIN
     Dosage: 2400 MILLIGRAM DAILY; ENTERIC
     Route: 048
     Dates: start: 20160104, end: 20160108
  4. ASPIRIN CARDIO 100 [Interacting]
     Active Substance: ASPIRIN
     Indication: CORONARY ARTERY DISEASE
     Dosage: 100 MILLIGRAM DAILY; PAUSES AND REINSTALLED - CONTINUED
     Route: 048
  5. SAROTEN [Concomitant]
     Active Substance: AMITRIPTYLINE
     Dosage: UNSPECIFIED STRENGTH
     Route: 065
  6. STILNOX [Concomitant]
     Active Substance: ZOLPIDEM TARTRATE
     Dosage: UNSPECIFIED STRENGTH
     Route: 065
  7. XARELTO [Interacting]
     Active Substance: RIVAROXABAN
     Indication: PROPHYLAXIS
     Dosage: 10 MILLIGRAM DAILY; AT 20 O^CLOCK
     Route: 048
     Dates: start: 20160105, end: 20160108
  8. BELOC-ZOK [Concomitant]
     Active Substance: METOPROLOL SUCCINATE
     Dosage: UNSPECIFIED STRENGTH
     Route: 065
  9. PANTOZOL [Concomitant]
     Active Substance: PANTOPRAZOLE SODIUM
     Dosage: UNSPECIFIED STRENGTH
     Route: 065

REACTIONS (6)
  - Haematemesis [Recovered/Resolved]
  - Melaena [Recovered/Resolved]
  - Blood pressure decreased [Recovered/Resolved]
  - Hiatus hernia [Unknown]
  - Potentiating drug interaction [Recovered/Resolved]
  - Gastrointestinal haemorrhage [Recovered/Resolved]

NARRATIVE: CASE EVENT DATE: 201601
